FAERS Safety Report 8264005-5 (Version None)
Quarter: 2012Q2

REPORT INFORMATION
  Report Type: 
  Country: None (occurrence: None)
  Receive Date: 20120406
  Receipt Date: 20120327
  Transmission Date: 20120825
  Serious: No
  Sender: FDA-Public Use
  Company Number: US-BIOGENIDEC-2011BI033801

PATIENT
  Age: 58 Year
  Sex: Female

DRUGS (1)
  1. TYSABRI [Suspect]
     Indication: MULTIPLE SCLEROSIS
     Route: 042
     Dates: start: 20101202

REACTIONS (9)
  - RASH [None]
  - MALAISE [None]
  - FEELING COLD [None]
  - SKIN EXFOLIATION [None]
  - POOR VENOUS ACCESS [None]
  - BLISTER [None]
  - TINEA PEDIS [None]
  - HYPERSENSITIVITY [None]
  - INFECTION [None]
